FAERS Safety Report 14755617 (Version 1)
Quarter: 2018Q2

REPORT INFORMATION
  Report Type: Spontaneous
  Country: FR (occurrence: FR)
  Receive Date: 20180413
  Receipt Date: 20180413
  Transmission Date: 20180711
  Serious: Yes (Other)
  Sender: FDA-Public Use
  Company Number: FR-MERCK KGAA-2045725

PATIENT
  Age: 60 Year
  Sex: Female
  Weight: 77 kg

DRUGS (1)
  1. NOVOTHYROX [Suspect]
     Active Substance: LEVOTHYROXINE SODIUM
     Indication: THYROIDECTOMY
     Route: 048
     Dates: start: 20170306, end: 20170928

REACTIONS (6)
  - Muscle spasms [Recovered/Resolved]
  - Myalgia [Recovering/Resolving]
  - Impaired work ability [Not Recovered/Not Resolved]
  - Asthenia [Recovering/Resolving]
  - Amnesia [Recovering/Resolving]
  - Diffuse alopecia [Recovered/Resolved]

NARRATIVE: CASE EVENT DATE: 201704
